FAERS Safety Report 16408873 (Version 3)
Quarter: 2019Q3

REPORT INFORMATION
  Report Type: Spontaneous
  Country: JP (occurrence: JP)
  Receive Date: 20190610
  Receipt Date: 20190709
  Transmission Date: 20191004
  Serious: Yes (Other)
  Sender: FDA-Public Use
  Company Number: JP-SUN PHARMACEUTICAL INDUSTRIES LTD-2019R1-209954

PATIENT
  Age: 79 Year
  Sex: Male

DRUGS (1)
  1. LIORESAL [Suspect]
     Active Substance: BACLOFEN
     Indication: HICCUPS
     Dosage: 15 MILLIGRAM, DAILY
     Route: 065

REACTIONS (2)
  - Off label use [Unknown]
  - Steroid withdrawal syndrome [Unknown]
